FAERS Safety Report 5623466-8 (Version None)
Quarter: 2008Q1

REPORT INFORMATION
  Report Type: 
  Country: None (occurrence: None)
  Receive Date: 20080212
  Receipt Date: 20080131
  Transmission Date: 20080703
  Serious: Yes (Hospitalization)
  Sender: FDA-Public Use
  Company Number: DE-ELI_LILLY_AND_COMPANY-DE200802000166

PATIENT
  Sex: Male

DRUGS (8)
  1. CYMBALTA [Suspect]
     Indication: DEPRESSION
     Dosage: 60 MG, DAILY (1/D)
     Route: 048
     Dates: start: 20080110, end: 20080124
  2. ALLOPURINOL [Concomitant]
     Dosage: UNK, UNKNOWN
  3. PANTOZOL [Concomitant]
     Dosage: UNK, UNKNOWN
  4. ATACAND [Concomitant]
     Dosage: UNK, UNKNOWN
  5. TOREM [Concomitant]
     Dosage: UNK, UNKNOWN
  6. TRILEPTAL [Concomitant]
     Dosage: UNK, UNKNOWN
  7. NOVALGIN [Concomitant]
     Dosage: UNK, UNKNOWN
  8. FALITHROM [Concomitant]
     Dosage: UNK, UNKNOWN

REACTIONS (4)
  - ILLUSION [None]
  - IMPULSIVE BEHAVIOUR [None]
  - LIBIDO INCREASED [None]
  - THINKING ABNORMAL [None]
